FAERS Safety Report 9499776 (Version 4)
Quarter: 2013Q3

REPORT INFORMATION
  Report Type: Spontaneous
  Country: US (occurrence: US)
  Receive Date: 20130905
  Receipt Date: 20130923
  Transmission Date: 20140515
  Serious: Yes (Hospitalization, Other)
  Sender: FDA-Public Use
  Company Number: US-JNJFOC-20130817446

PATIENT
  Age: 75 Year
  Sex: Female
  Weight: 69.85 kg

DRUGS (10)
  1. XARELTO [Suspect]
     Indication: CEREBROVASCULAR ACCIDENT PROPHYLAXIS
     Route: 048
     Dates: start: 20130722, end: 20130725
  2. XARELTO [Suspect]
     Indication: ATRIAL FIBRILLATION
     Route: 048
     Dates: start: 20130722, end: 20130725
  3. ASPIRIN [Suspect]
     Indication: PRODUCT USED FOR UNKNOWN INDICATION
     Route: 065
     Dates: end: 20130725
  4. PEPCID [Concomitant]
     Indication: GASTROOESOPHAGEAL REFLUX DISEASE
     Route: 065
  5. AMIODARONE [Concomitant]
     Dosage: DAILY
     Route: 065
  6. NEXIUM [Concomitant]
     Route: 065
  7. METFORMIN [Concomitant]
     Route: 065
  8. NADOLOL [Concomitant]
     Route: 065
  9. BENAZEPRIL/HYDROCHLOROTHIAZIDE [Concomitant]
     Dosage: 12/12.5 UNITS UNSPECIFIED
     Route: 065
  10. HYDROCHLOROTHIAZIDE [Concomitant]
     Route: 065

REACTIONS (3)
  - Peptic ulcer haemorrhage [Recovered/Resolved]
  - Haemoglobin decreased [Recovered/Resolved]
  - Upper gastrointestinal haemorrhage [Recovering/Resolving]
